FAERS Safety Report 7044819-X (Version None)
Quarter: 2010Q4

REPORT INFORMATION
  Report Type: 
  Country: None (occurrence: None)
  Receive Date: 20101014
  Receipt Date: 20100930
  Transmission Date: 20110411
  Serious: Yes (Other)
  Sender: FDA-Public Use
  Company Number: PHHY2010NL65201

PATIENT
  Age: 49 Year
  Sex: Male

DRUGS (2)
  1. GLEEVEC [Suspect]
     Indication: CHRONIC EOSINOPHILIC LEUKAEMIA
     Dosage: UNK
     Dates: start: 20100204
  2. GLEEVEC [Suspect]
     Dosage: 100 MG, UNK

REACTIONS (3)
  - INTRACARDIAC THROMBUS [None]
  - LEUKAEMIC INFILTRATION [None]
  - MUSCLE DISORDER [None]
